FAERS Safety Report 9473160 (Version 2)
Quarter: 2013Q3

REPORT INFORMATION
  Report Type: Spontaneous
  Country: US (occurrence: US)
  Receive Date: 20130823
  Receipt Date: 20130823
  Transmission Date: 20140515
  Serious: Yes (Hospitalization)
  Sender: FDA-Public Use
  Company Number: US-BRISTOL-MYERS SQUIBB COMPANY-18707588

PATIENT
  Age: 60 Year
  Sex: Female

DRUGS (10)
  1. SPRYCEL (CML) TABS 100 MG [Suspect]
     Indication: CHRONIC MYELOID LEUKAEMIA
     Dosage: RESTRTED:03/21/2013:50MG/D
     Route: 048
     Dates: start: 20130201, end: 20130408
  2. ASPIRIN [Suspect]
  3. PROMETHAZINE [Concomitant]
  4. METOPROLOL [Concomitant]
  5. ALLOPURINOL [Concomitant]
  6. HYDROCODONE [Concomitant]
  7. HYDROXYUREA [Concomitant]
  8. SENNA [Concomitant]
  9. GLUCOSAMINE [Concomitant]
  10. CALCIUM [Concomitant]

REACTIONS (4)
  - Haemorrhage [Unknown]
  - Platelet count decreased [Recovering/Resolving]
  - Pruritus [Recovering/Resolving]
  - Rash [Recovering/Resolving]
